FAERS Safety Report 8317775-1 (Version None)
Quarter: 2012Q2

REPORT INFORMATION
  Report Type: 
  Country: None (occurrence: None)
  Receive Date: 20120427
  Receipt Date: 20120425
  Transmission Date: 20120825
  Serious: Yes (Hospitalization)
  Sender: FDA-Public Use
  Company Number: US-PFIZER INC-2012103051

PATIENT
  Sex: Male
  Weight: 100 kg

DRUGS (17)
  1. PLAVIX [Concomitant]
     Dosage: UNK
  2. ALBUTEROL [Concomitant]
     Dosage: UNK
  3. ATENOLOL [Concomitant]
     Dosage: UNK
  4. AMLODIPINE [Concomitant]
     Dosage: UNK
  5. AVODART [Concomitant]
     Dosage: UNK
  6. OMEGA-3 TRIGLYCERIDES [Concomitant]
     Dosage: UNK
  7. MULTI-VITAMINS [Concomitant]
     Dosage: UNK
  8. TIKOSYN [Suspect]
     Indication: ATRIAL FIBRILLATION
     Dosage: 500 UG, 2X/DAY
     Route: 048
     Dates: end: 20120423
  9. HALDOL [Concomitant]
     Dosage: UNK
  10. CELEBREX [Concomitant]
     Dosage: UNK
  11. LOPRESSOR [Concomitant]
     Dosage: UNK
  12. MAGNESIUM [Concomitant]
     Dosage: UNK
  13. PANTOPRAZOLE [Concomitant]
     Dosage: UNK
  14. ZOFRAN [Concomitant]
     Dosage: UNK
  15. ACETYLSALICYLIC ACID [Concomitant]
     Dosage: UNK
  16. WARFARIN [Concomitant]
     Dosage: UNK
  17. LIPITOR [Concomitant]
     Dosage: UNK

REACTIONS (2)
  - RENAL FAILURE ACUTE [None]
  - URINARY TRACT INFECTION [None]
